FAERS Safety Report 21733740 (Version 2)
Quarter: 2023Q1

REPORT INFORMATION
  Report Type: Spontaneous
  Country: US (occurrence: US)
  Receive Date: 20221215
  Receipt Date: 20230220
  Transmission Date: 20230418
  Serious: No
  Sender: FDA-Public Use
  Company Number: US-BAYER-2022A166346

PATIENT
  Age: 70 Year
  Sex: Male

DRUGS (1)
  1. CLIMARA [Suspect]
     Active Substance: ESTRADIOL
     Indication: Transgender hormonal therapy
     Dosage: UNK
     Route: 062
     Dates: start: 20221116, end: 20221208

REACTIONS (2)
  - Device difficult to use [Not Recovered/Not Resolved]
  - Device colour issue [None]
